FAERS Safety Report 12848837 (Version 1)
Quarter: 2016Q4

REPORT INFORMATION
  Report Type: Spontaneous
  Country: US (occurrence: US)
  Receive Date: 20161014
  Receipt Date: 20161014
  Transmission Date: 20170207
  Serious: Yes (Death)
  Sender: FDA-Public Use
  Company Number: US-DEPOMED, INC.-US-2016DEP012459

PATIENT

DRUGS (1)
  1. GRALISE [Suspect]
     Active Substance: GABAPENTIN
     Indication: LUMBOSACRAL RADICULOPATHY
     Dosage: 1800 MG, QD, EVERY NIGHT
     Route: 048
     Dates: start: 20160519, end: 20161006

REACTIONS (2)
  - Death [Fatal]
  - Product use issue [Recovered/Resolved]

NARRATIVE: CASE EVENT DATE: 20160519
